FAERS Safety Report 5874186-6 (Version None)
Quarter: 2008Q3

REPORT INFORMATION
  Report Type: 
  Country: None (occurrence: None)
  Receive Date: 20080908
  Receipt Date: 20080905
  Transmission Date: 20090109
  Serious: Yes (Hospitalization)
  Sender: FDA-Public Use
  Company Number: CA-WYE-G02080908

PATIENT
  Sex: Male

DRUGS (37)
  1. TACROLIMUS [Suspect]
     Indication: PROPHYLAXIS AGAINST TRANSPLANT REJECTION
     Route: 048
     Dates: start: 20071106, end: 20071203
  2. TACROLIMUS [Suspect]
     Route: 048
     Dates: start: 20071204, end: 20080629
  3. TACROLIMUS [Suspect]
     Route: 048
     Dates: start: 20080630
  4. PREDNISONE [Suspect]
     Indication: PROPHYLAXIS AGAINST TRANSPLANT REJECTION
     Route: 048
     Dates: start: 20070907, end: 20070923
  5. PREDNISONE [Suspect]
     Route: 048
     Dates: start: 20070924, end: 20070930
  6. PREDNISONE [Suspect]
     Route: 048
     Dates: start: 20071001, end: 20071007
  7. PREDNISONE [Suspect]
     Route: 048
     Dates: start: 20071008, end: 20071014
  8. PREDNISONE [Suspect]
     Route: 048
     Dates: start: 20071015, end: 20071021
  9. PREDNISONE [Suspect]
     Route: 048
     Dates: start: 20071022, end: 20071113
  10. PREDNISONE [Suspect]
     Route: 048
     Dates: start: 20071114, end: 20071204
  11. PREDNISONE [Suspect]
     Route: 048
     Dates: start: 20071205, end: 20080127
  12. PREDNISONE [Suspect]
     Route: 048
     Dates: start: 20080128, end: 20080224
  13. PREDNISONE [Suspect]
     Route: 048
     Dates: start: 20080225, end: 20080820
  14. PREDNISONE [Suspect]
     Route: 048
     Dates: start: 20080821
  15. AMLODIPINE [Concomitant]
     Route: 048
     Dates: start: 20020101, end: 20070801
  16. AMLODIPINE [Concomitant]
     Route: 048
     Dates: start: 20070802, end: 20070919
  17. AMLODIPINE [Concomitant]
     Route: 048
     Dates: start: 20070920, end: 20080119
  18. AMLODIPINE [Concomitant]
     Route: 048
     Dates: start: 20080128, end: 20080501
  19. AMLODIPINE [Concomitant]
     Route: 048
     Dates: start: 20080502, end: 20080720
  20. AMLODIPINE [Concomitant]
     Route: 048
     Dates: start: 20080721, end: 20080818
  21. EZETIMIBE [Concomitant]
     Route: 048
     Dates: start: 20040101
  22. CRESTOR [Concomitant]
     Route: 048
     Dates: start: 20050101
  23. BISOPROLOL FUMARATE [Concomitant]
     Route: 048
     Dates: start: 20050101, end: 20070410
  24. BISOPROLOL FUMARATE [Concomitant]
     Route: 048
     Dates: start: 20070411
  25. FUROSEMIDE [Concomitant]
     Route: 048
     Dates: start: 20020101, end: 20070210
  26. HYDROCHLOROTHIAZIDE [Concomitant]
     Route: 048
     Dates: start: 20071010
  27. ARANESP [Concomitant]
     Dosage: 40 MCG DAILY
     Dates: start: 20080721
  28. SENSIPAR [Concomitant]
  29. NORVASC [Concomitant]
  30. PREVACID [Concomitant]
  31. FLOMAX [Concomitant]
  32. DOMPERIDONE [Concomitant]
  33. PLAVIX [Concomitant]
     Dosage: UNKNOWN
     Route: 048
     Dates: end: 20080816
  34. MYCOPHENOLATE MOFETIL [Concomitant]
     Indication: PROPHYLAXIS AGAINST TRANSPLANT REJECTION
     Route: 048
     Dates: start: 20070124, end: 20070206
  35. MYCOPHENOLATE MOFETIL [Concomitant]
     Route: 048
     Dates: start: 20070207, end: 20070207
  36. MYCOPHENOLATE MOFETIL [Concomitant]
     Route: 048
     Dates: start: 20070208, end: 20070621
  37. MYCOPHENOLATE MOFETIL [Concomitant]
     Route: 048
     Dates: start: 20070622

REACTIONS (1)
  - OSTEONECROSIS [None]
